FAERS Safety Report 23163564 (Version 1)
Quarter: 2023Q4

REPORT INFORMATION
  Report Type: Spontaneous
  Country: CA (occurrence: CA)
  Receive Date: 20231109
  Receipt Date: 20231109
  Transmission Date: 20240110
  Serious: Yes (Other)
  Sender: FDA-Public Use
  Company Number: CA-Accord-387433

PATIENT
  Age: 63 Year
  Sex: Female

DRUGS (1)
  1. HYDROXYCHLOROQUINE [Suspect]
     Active Substance: HYDROXYCHLOROQUINE
     Indication: Sjogren^s syndrome
     Dosage: CUMULATIVE DOSE OF 4526 G

REACTIONS (5)
  - Cardiomyopathy [Unknown]
  - Off label use [Unknown]
  - Ventricular remodelling [Unknown]
  - Muscular weakness [Recovered/Resolved]
  - Diastolic dysfunction [Unknown]
